FAERS Safety Report 23503498 (Version 1)
Quarter: 2024Q1

REPORT INFORMATION
  Report Type: Spontaneous
  Country: TR (occurrence: TR)
  Receive Date: 20240208
  Receipt Date: 20240208
  Transmission Date: 20240409
  Serious: Yes (Hospitalization, Other)
  Sender: FDA-Public Use
  Company Number: TR-AMGEN-TURSP2024021272

PATIENT
  Age: 37 Year
  Sex: Male

DRUGS (4)
  1. CINACALCET HYDROCHLORIDE [Suspect]
     Active Substance: CINACALCET HYDROCHLORIDE
     Indication: Hyperparathyroidism
     Dosage: UNK
     Route: 048
  2. ETELCALCETIDE [Suspect]
     Active Substance: ETELCALCETIDE
     Indication: Hyperparathyroidism
     Dosage: 7.5 MILLIGRAM, THREE TIMES A WEEK (PARENTRAL)
     Route: 065
  3. CALCIUM CARBONATE [Concomitant]
     Active Substance: CALCIUM CARBONATE
     Dosage: 2000 MILLIGRAM, QD X 3
     Route: 065
  4. PARICALCITOL [Concomitant]
     Active Substance: PARICALCITOL
     Dosage: UNK
     Route: 065

REACTIONS (11)
  - Exophthalmos [Unknown]
  - Papilloedema [Unknown]
  - Brown tumour [Unknown]
  - Lower limb fracture [Unknown]
  - Parathyroid tumour benign [Unknown]
  - Hyperparathyroidism [Unknown]
  - Therapy non-responder [Unknown]
  - Gastrointestinal disorder [Unknown]
  - Blood parathyroid hormone decreased [Unknown]
  - Muscular weakness [Unknown]
  - Bone pain [Unknown]
